FAERS Safety Report 4509540-8 (Version None)
Quarter: 2004Q4

REPORT INFORMATION
  Report Type: 
  Country: None (occurrence: None)
  Receive Date: 20041119
  Receipt Date: 20041116
  Transmission Date: 20050328
  Serious: Yes (Death)
  Sender: FDA-Public Use
  Company Number: 200421006BWH

PATIENT
  Age: 46 Year
  Sex: Female

DRUGS (4)
  1. AVELOX [Suspect]
     Indication: BRONCHITIS
     Dosage: 400 MG , ONCE, ORAL
     Route: 048
     Dates: start: 20041101
  2. ZITHROMAX [Concomitant]
  3. CRESTOR [Concomitant]
  4. AVANDIA [Concomitant]

REACTIONS (4)
  - ANAPHYLACTIC SHOCK [None]
  - BRONCHITIS [None]
  - INTUBATION COMPLICATION [None]
  - PNEUMONIA [None]
